FAERS Safety Report 4809281-3 (Version None)
Quarter: 2005Q4

REPORT INFORMATION
  Report Type: 
  Country: None (occurrence: None)
  Receive Date: 20051021
  Receipt Date: 20051007
  Transmission Date: 20060501
  Serious: Yes (Death, Hospitalization)
  Sender: FDA-Public Use
  Company Number: RENA-11567

PATIENT
  Age: 69 Year
  Sex: Female

DRUGS (9)
  1. PHOSBLOCK - 250 MG TABLETS [Suspect]
     Indication: HYPERPHOSPHATAEMIA
     Dosage: 3.75 G DAILY PO
     Route: 048
     Dates: start: 20030701, end: 20050908
  2. EPOETIN ALFA [Concomitant]
  3. CALCITRIOL [Concomitant]
  4. ASPIRIN [Concomitant]
  5. MOSAPRIDE CITRATE [Concomitant]
  6. NICORANDIL [Concomitant]
  7. TEPRENONE [Concomitant]
  8. LANSOPRAZOLE [Concomitant]
  9. SENNOSIDE [Concomitant]

REACTIONS (15)
  - ABDOMINAL WALL DISORDER [None]
  - ANOREXIA [None]
  - AORTIC VALVE REPLACEMENT [None]
  - ARTERIOSCLEROSIS OBLITERANS [None]
  - CORONARY ARTERY SURGERY [None]
  - DIARRHOEA [None]
  - DIVERTICULITIS [None]
  - LARGE INTESTINE PERFORATION [None]
  - MITRAL VALVE REPLACEMENT [None]
  - MUSCLE SPASMS [None]
  - NAUSEA [None]
  - NECK PAIN [None]
  - PERITONITIS [None]
  - SEPTIC SHOCK [None]
  - TRICUSPID VALVE INCOMPETENCE [None]
